FAERS Safety Report 14380975 (Version 1)
Quarter: 2018Q1

REPORT INFORMATION
  Report Type: Spontaneous
  Country: US (occurrence: US)
  Receive Date: 20180112
  Receipt Date: 20180112
  Transmission Date: 20180509
  Serious: No
  Sender: FDA-Public Use
  Company Number: US-ALKERMES INC.-ALK-2017-005251

PATIENT
  Age: 49 Year
  Sex: Female
  Weight: 112.47 kg

DRUGS (1)
  1. ARISTADA [Suspect]
     Active Substance: ARIPIPRAZOLE LAUROXIL
     Indication: SCHIZOTYPAL PERSONALITY DISORDER
     Dosage: 662 MG, QMO
     Route: 030
     Dates: start: 201709

REACTIONS (2)
  - Hypersomnia [Unknown]
  - Inappropriate schedule of drug administration [Unknown]

NARRATIVE: CASE EVENT DATE: 2017
